FAERS Safety Report 6729520 (Version 2)
Quarter: 2014Q1

REPORT INFORMATION
  Report Type: Other
  Country: JP (occurrence: JP)
  Receive Date: 20080818
  Receipt Date: 20140212
  Transmission Date: 20141002
  Serious: Yes (Hospitalization)
  Sender: FDA-Public Use
  Company Number: JP-BRISTOL-MYERS SQUIBB COMPANY-14298996

PATIENT
  Age: 53 Year
  Sex: Female

DRUGS (10)
  1. MAXIPIME [Suspect]
     Indication: SEPSIS
     Route: 041
  2. ALLOPURINOL [Suspect]
     Indication: PROPHYLAXIS
     Route: 048
  3. CYTARABINE [Suspect]
     Indication: ACUTE MYELOMONOCYTIC LEUKAEMIA
  4. IDARUBICIN [Suspect]
     Indication: ACUTE MYELOMONOCYTIC LEUKAEMIA
  5. TOSUFLOXACIN [Suspect]
     Indication: SEPSIS
  6. FLUCONAZOLE [Suspect]
     Indication: BRONCHOPULMONARY ASPERGILLOSIS
  7. VANCOMYCIN [Suspect]
     Indication: SEPSIS
  8. MEROPENEM [Suspect]
     Indication: SEPSIS
  9. MICAFUNGIN SODIUM [Suspect]
     Indication: BRONCHOPULMONARY ASPERGILLOSIS
  10. VORICONAZOLE [Suspect]
     Indication: BRONCHOPULMONARY ASPERGILLOSIS

REACTIONS (1)
  - Drug reaction with eosinophilia and systemic symptoms [Recovering/Resolving]
